FAERS Safety Report 17147687 (Version 1)
Quarter: 2019Q4

REPORT INFORMATION
  Report Type: Other
  Country: US (occurrence: US)
  Receive Date: 20191212
  Receipt Date: 20191212
  Transmission Date: 20200122
  Serious: Yes (Death, Hospitalization, Other)
  Sender: FDA-Public Use
  Company Number: US-AMAG PHARMACEUTICALS, INC.-AMAG201906399

PATIENT
  Age: 0 Day
  Sex: Male

DRUGS (1)
  1. MAKENA [Suspect]
     Active Substance: HYDROXYPROGESTERONE CAPROATE
     Indication: FOETAL EXPOSURE DURING PREGNANCY
     Route: 064
     Dates: start: 20190913, end: 20191024

REACTIONS (3)
  - Premature baby [Not Recovered/Not Resolved]
  - Foetal distress syndrome [Not Recovered/Not Resolved]
  - Sepsis neonatal [Fatal]

NARRATIVE: CASE EVENT DATE: 20191123
